FAERS Safety Report 14191864 (Version 1)
Quarter: 2017Q4

REPORT INFORMATION
  Report Type: Spontaneous
  Country: US (occurrence: US)
  Receive Date: 20171115
  Receipt Date: 20171115
  Transmission Date: 20180321
  Serious: Yes (Death)
  Sender: FDA-Public Use
  Company Number: US-ACTELION-A-NJ2017-162184

PATIENT
  Age: 74 Year
  Sex: Male

DRUGS (2)
  1. METOLAZONE. [Concomitant]
     Active Substance: METOLAZONE
     Dosage: 10 MG, UNK
  2. OPSUMIT [Suspect]
     Active Substance: MACITENTAN
     Indication: PULMONARY ARTERIAL HYPERTENSION
     Dosage: 10 MG, UNK
     Route: 048
     Dates: start: 20170928

REACTIONS (1)
  - Death [Fatal]
